FAERS Safety Report 16687642 (Version 1)
Quarter: 2019Q3

REPORT INFORMATION
  Report Type: Spontaneous
  Country: US (occurrence: US)
  Receive Date: 20190809
  Receipt Date: 20190809
  Transmission Date: 20191004
  Serious: No
  Sender: FDA-Public Use
  Company Number: US-PFIZER INC-2019337036

PATIENT
  Sex: Male

DRUGS (1)
  1. CHANTIX [Suspect]
     Active Substance: VARENICLINE TARTRATE
     Dosage: 1 MG, UNK (HE DOES NOT TAKE A MORNING DOSE, ONLY THIS ONE IN THE MIDDLE OF THE NIGHT)

REACTIONS (4)
  - Nausea [Unknown]
  - Restlessness [Unknown]
  - Insomnia [Unknown]
  - Inappropriate schedule of product administration [Unknown]
